FAERS Safety Report 8360970-6 (Version None)
Quarter: 2012Q2

REPORT INFORMATION
  Report Type: 
  Country: None (occurrence: None)
  Receive Date: 20120515
  Receipt Date: 20120504
  Transmission Date: 20120825
  Serious: Yes (Other)
  Sender: FDA-Public Use
  Company Number: US-ROCHE-1021567

PATIENT
  Sex: Female

DRUGS (5)
  1. TELAPREVIR [Suspect]
     Indication: HEPATITIS C
     Dosage: 2 TABLETS THRICE DAILY
     Dates: start: 20111212, end: 20120205
  2. COPEGUS [Suspect]
     Indication: HEPATITIS C
     Dosage: 800 MG DIVIDED DOSES
     Route: 048
     Dates: start: 20111212
  3. PEGASYS [Suspect]
     Route: 058
  4. COPEGUS [Suspect]
     Dosage: IN DIVIDED DOSES
  5. PEGASYS [Suspect]
     Indication: HEPATITIS C
     Route: 058
     Dates: start: 20111212

REACTIONS (12)
  - FAECES DISCOLOURED [None]
  - PRURITUS [None]
  - SWELLING FACE [None]
  - SOMNOLENCE [None]
  - GINGIVAL BLEEDING [None]
  - DIZZINESS [None]
  - DRY SKIN [None]
  - LOSS OF CONSCIOUSNESS [None]
  - WHITE BLOOD CELL COUNT DECREASED [None]
  - MASS [None]
  - ASTHENIA [None]
  - PLATELET COUNT DECREASED [None]
